FAERS Safety Report 7916605-7 (Version None)
Quarter: 2011Q4

REPORT INFORMATION
  Report Type: 
  Country: None (occurrence: None)
  Receive Date: 20111116
  Receipt Date: 20111111
  Transmission Date: 20120403
  Serious: No
  Sender: FDA-Public Use
  Company Number: US-PFIZER INC-2011246904

PATIENT
  Sex: Female
  Weight: 67 kg

DRUGS (8)
  1. VITAMIN D [Concomitant]
     Indication: VITAMIN SUPPLEMENTATION
     Dosage: 3000 IU, DAILY
  2. LITHIUM [Concomitant]
     Dosage: UNK
  3. AROMASIN [Suspect]
     Dosage: 25 MG, 1X/DAY
     Route: 048
     Dates: start: 20111012
  4. LOVAZA [Concomitant]
     Indication: SUPPLEMENTATION THERAPY
     Dosage: 200 MG, DAILY
  5. FASLODEX [Concomitant]
     Indication: BREAST CANCER
     Dosage: 250 MG, UNK
  6. AROMASIN [Suspect]
     Indication: BREAST CANCER
     Dosage: 25 MG, DAILY
     Route: 048
     Dates: start: 20110801
  7. CALCIUM [Concomitant]
     Indication: MINERAL SUPPLEMENTATION
     Dosage: 600 MG, DAILY
  8. SLOW-MAG [Concomitant]
     Indication: MAGNESIUM DEFICIENCY
     Dosage: 143 MG, DAILY
     Route: 048
     Dates: start: 20111007, end: 20111008

REACTIONS (2)
  - FLATULENCE [None]
  - ABDOMINAL DISTENSION [None]
